FAERS Safety Report 17926847 (Version 2)
Quarter: 2020Q2

REPORT INFORMATION
  Report Type: Report from Study
  Country: US (occurrence: US)
  Receive Date: 20200623
  Receipt Date: 20200626
  Transmission Date: 20200714
  Serious: Yes (Hospitalization)
  Sender: FDA-Public Use
  Company Number: US-ROCHE-2626098

PATIENT
  Age: 82 Year
  Sex: Female
  Weight: 66.1 kg

DRUGS (4)
  1. CARBOPLATIN. [Suspect]
     Active Substance: CARBOPLATIN
     Indication: NON-SMALL CELL LUNG CANCER
     Route: 065
     Dates: start: 20200310
  2. PEMETREXED. [Suspect]
     Active Substance: PEMETREXED
     Indication: NON-SMALL CELL LUNG CANCER
     Route: 065
     Dates: start: 20200310
  3. PIRFENIDONE. [Suspect]
     Active Substance: PIRFENIDONE
     Indication: NON-SMALL CELL LUNG CANCER
     Route: 048
  4. PIRFENIDONE. [Suspect]
     Active Substance: PIRFENIDONE
     Indication: NON-SMALL CELL LUNG CANCER
     Route: 048

REACTIONS (1)
  - Haemoptysis [Not Recovered/Not Resolved]

NARRATIVE: CASE EVENT DATE: 20200607
